FAERS Safety Report 18281021 (Version 2)
Quarter: 2020Q4

REPORT INFORMATION
  Report Type: Other
  Country: KR (occurrence: KR)
  Receive Date: 20200918
  Receipt Date: 20201125
  Transmission Date: 20210113
  Serious: Yes (Hospitalization)
  Sender: FDA-Public Use
  Company Number: KR-ROCHE-2679017

PATIENT
  Age: 78 Year
  Sex: Male
  Weight: 49.8 kg

DRUGS (2)
  1. MYPOL CAPSULES [Concomitant]
     Indication: PAIN
     Route: 048
     Dates: start: 20200720
  2. ATEZOLIZUMAB. [Suspect]
     Active Substance: ATEZOLIZUMAB
     Indication: NON-SMALL CELL LUNG CANCER
     Route: 041
     Dates: start: 20200722, end: 20201123

REACTIONS (1)
  - Pneumothorax [Recovered/Resolved]

NARRATIVE: CASE EVENT DATE: 20200915
